FAERS Safety Report 21183741 (Version 2)
Quarter: 2022Q3

REPORT INFORMATION
  Report Type: Spontaneous
  Country: US (occurrence: US)
  Receive Date: 20220808
  Receipt Date: 20220914
  Transmission Date: 20221027
  Serious: Yes (Hospitalization, Other)
  Sender: FDA-Public Use
  Company Number: US-BRISTOL-MYERS SQUIBB COMPANY-2022-085017

PATIENT
  Age: 83 Year
  Sex: Male

DRUGS (1)
  1. REVLIMID [Suspect]
     Active Substance: LENALIDOMIDE
     Indication: Product used for unknown indication
     Dosage: TAKE 1 CAPSULE (5MG) BY MOUTH EVERY DAY FOR 7 DAYS ON, THEN 7 DAYS OFF. THEN REPEAT
     Route: 048
     Dates: start: 20190927

REACTIONS (3)
  - Atrial fibrillation [Recovered/Resolved]
  - Rash [Unknown]
  - Off label use [Unknown]
